FAERS Safety Report 4777542-2 (Version None)
Quarter: 2005Q3

REPORT INFORMATION
  Report Type: 
  Country: None (occurrence: None)
  Receive Date: 20050923
  Receipt Date: 20050825
  Transmission Date: 20060218
  Serious: Yes (Hospitalization)
  Sender: FDA-Public Use
  Company Number: US-BRISTOL-MYERS SQUIBB COMPANY-13091889

PATIENT
  Age: 71 Year
  Sex: Female

DRUGS (24)
  1. CETUXIMAB [Suspect]
     Indication: NON-SMALL CELL LUNG CANCER
     Route: 042
     Dates: start: 20050817, end: 20050817
  2. CARBOPLATIN [Suspect]
     Indication: NON-SMALL CELL LUNG CANCER
     Route: 042
     Dates: start: 20050817, end: 20050817
  3. GEMCITABINE [Suspect]
     Indication: NON-SMALL CELL LUNG CANCER
     Route: 042
     Dates: start: 20050817, end: 20050817
  4. OXYCONTIN [Concomitant]
     Dates: start: 20050729
  5. XANAX [Concomitant]
     Dates: start: 20050803
  6. SPIRONOLACTONE [Concomitant]
     Dates: start: 20050201, end: 20050902
  7. FUROSEMIDE [Concomitant]
     Dates: start: 20050201, end: 20050902
  8. POTASSIUM CHLORIDE [Concomitant]
     Dates: start: 20050201, end: 20050902
  9. TOPROL-XL [Concomitant]
     Dates: start: 20050201
  10. SYNTHROID [Concomitant]
  11. NEXIUM [Concomitant]
     Dates: start: 20050701
  12. ADVAIR DISKUS 100/50 [Concomitant]
     Dates: start: 20050701, end: 20050810
  13. ALUMINUM HYDROXIDE AND MAGNESIUM TRISILICATE [Concomitant]
     Dates: start: 20050803
  14. METHOCARBAMOL [Concomitant]
     Dates: start: 20050201, end: 20050902
  15. FLEXERIL [Concomitant]
     Dates: start: 20050716, end: 20050902
  16. RESTORIL [Concomitant]
     Dates: start: 20050716, end: 20050902
  17. EFFEXOR [Concomitant]
     Dates: start: 20050803
  18. MULTIVITAMIN [Concomitant]
     Dates: start: 20050701, end: 20050810
  19. FLAXSEED OIL [Concomitant]
     Dates: start: 20050701, end: 20050810
  20. CALCIUM GLUCONATE [Concomitant]
     Dates: start: 20050701, end: 20050810
  21. PREDNISONE [Concomitant]
     Dates: start: 20050803, end: 20050807
  22. LORTAB [Concomitant]
     Dates: start: 20050803
  23. AMBIEN [Concomitant]
     Dates: start: 20050815
  24. CALCITRIOL [Concomitant]
     Dates: start: 20050701, end: 20050810

REACTIONS (4)
  - ANAEMIA [None]
  - LEUKOPENIA [None]
  - SEDATION [None]
  - THROMBOCYTOPENIA [None]
